FAERS Safety Report 21806374 (Version 1)
Quarter: 2023Q1

REPORT INFORMATION
  Report Type: Report from Study
  Country: US (occurrence: US)
  Receive Date: 20230102
  Receipt Date: 20230102
  Transmission Date: 20230418
  Serious: No
  Sender: FDA-Public Use
  Company Number: US-ABBVIE-4210308

PATIENT
  Age: 52 Year
  Sex: Female

DRUGS (5)
  1. RINVOQ [Suspect]
     Active Substance: UPADACITINIB
     Indication: Rheumatoid arthritis
     Dosage: FORM STRENGTH: 15 MG
     Route: 048
     Dates: start: 2019
  2. NAPROXEN DR 500 Mg [Concomitant]
     Indication: Product used for unknown indication
     Dosage: NAPROXEN DR 500 MG TABLET
     Route: 048
  3. LORAZEPAM [Concomitant]
     Active Substance: LORAZEPAM
     Indication: Product used for unknown indication
  4. OXYCODONE HCL 20 MG [Concomitant]
     Indication: Product used for unknown indication
     Dosage: OXYCODONE HCL 20 MG TABLET
     Route: 048
  5. CYMBALTA [Concomitant]
     Active Substance: DULOXETINE HYDROCHLORIDE
     Indication: Product used for unknown indication

REACTIONS (3)
  - Carpal tunnel syndrome [Not Recovered/Not Resolved]
  - Tendonitis [Not Recovered/Not Resolved]
  - Hypersensitivity [Not Recovered/Not Resolved]

NARRATIVE: CASE EVENT DATE: 20221110
